FAERS Safety Report 16780078 (Version 2)
Quarter: 2020Q2

REPORT INFORMATION
  Report Type: Spontaneous
  Country: US (occurrence: US)
  Receive Date: 20190906
  Receipt Date: 20200413
  Transmission Date: 20200713
  Serious: No
  Sender: FDA-Public Use
  Company Number: US-GILEAD-2019-0426550

PATIENT
  Age: 31 Year
  Sex: Male

DRUGS (24)
  1. PROVENTIL HFA [Concomitant]
     Active Substance: ALBUTEROL SULFATE
  2. AZITHROMYCIN ANHYDROUS. [Concomitant]
     Active Substance: AZITHROMYCIN ANHYDROUS
  3. BACLOFEN. [Concomitant]
     Active Substance: BACLOFEN
  4. VITAMIN B6 [Concomitant]
     Active Substance: PYRIDOXINE HYDROCHLORIDE
  5. VIREAD [Suspect]
     Active Substance: TENOFOVIR DISOPROXIL FUMARATE
     Indication: HIV INFECTION
     Dosage: UNK
     Route: 065
     Dates: start: 200804, end: 200905
  6. VITAMIN D2 [Concomitant]
     Active Substance: ERGOCALCIFEROL
  7. NAPROXEN. [Concomitant]
     Active Substance: NAPROXEN
  8. ISONIAZID. [Concomitant]
     Active Substance: ISONIAZID
  9. DOXYCYCLINE HYCLATE. [Concomitant]
     Active Substance: DOXYCYCLINE HYCLATE
  10. REYATAZ [Concomitant]
     Active Substance: ATAZANAVIR SULFATE
  11. CYMBALTA [Concomitant]
     Active Substance: DULOXETINE HYDROCHLORIDE
  12. FEXOFENADINE [Concomitant]
     Active Substance: FEXOFENADINE HYDROCHLORIDE
  13. METRONIDAZOLE. [Concomitant]
     Active Substance: METRONIDAZOLE
  14. METHYLPREDNISOLONE. [Concomitant]
     Active Substance: METHYLPREDNISOLONE
  15. TRUVADA [Suspect]
     Active Substance: EMTRICITABINE\TENOFOVIR DISOPROXIL FUMARATE
     Indication: HIV INFECTION
     Dosage: UNK
     Route: 048
     Dates: start: 200904, end: 201905
  16. NORVIR [Concomitant]
     Active Substance: RITONAVIR
  17. BIKTARVY [Concomitant]
     Active Substance: BICTEGRAVIR SODIUM\EMTRICITABINE\TENOFOVIR ALAFENAMIDE FUMARATE
  18. BUDEPRION [Concomitant]
     Active Substance: BUPROPION HYDROCHLORIDE
  19. DICLOFENAC [Concomitant]
     Active Substance: DICLOFENAC
  20. QUETIAPINE. [Concomitant]
     Active Substance: QUETIAPINE
  21. ATRIPLA [Concomitant]
     Active Substance: EFAVIRENZ\EMTRICITABINE\TENOFOVIR DISOPROXIL FUMARATE
  22. VALACYCLOVIR [Concomitant]
     Active Substance: VALACYCLOVIR HYDROCHLORIDE
  23. CITALOPRAM [Concomitant]
     Active Substance: CITALOPRAM HYDROBROMIDE
  24. SONATA [CARISOPRODOL] [Concomitant]

REACTIONS (8)
  - Bone density decreased [Not Recovered/Not Resolved]
  - Economic problem [Unknown]
  - Pain [Unknown]
  - Bone density abnormal [Not Recovered/Not Resolved]
  - Anhedonia [Unknown]
  - Emotional distress [Unknown]
  - Anxiety [Unknown]
  - Tooth loss [Not Recovered/Not Resolved]

NARRATIVE: CASE EVENT DATE: 201102
